FAERS Safety Report 22178363 (Version 1)
Quarter: 2023Q2

REPORT INFORMATION
  Report Type: Spontaneous
  Country: GR (occurrence: GR)
  Receive Date: 20230405
  Receipt Date: 20230405
  Transmission Date: 20230722
  Serious: Yes (Other)
  Sender: FDA-Public Use
  Company Number: GR-GLAXOSMITHKLINE-GR2018GSK068741

PATIENT
  Age: 58 Year
  Sex: Female

DRUGS (3)
  1. DEXAMETHASONE [Suspect]
     Active Substance: DEXAMETHASONE
     Indication: Hypersensitivity
     Route: 065
     Dates: start: 20180417
  2. LEVOCETIRIZINE [Suspect]
     Active Substance: LEVOCETIRIZINE
     Indication: Product used for unknown indication
     Route: 065
     Dates: end: 20180417
  3. XYZAL [Suspect]
     Active Substance: LEVOCETIRIZINE DIHYDROCHLORIDE
     Indication: Product used for unknown indication
     Dosage: UNK UNK, UNK
     Route: 065
     Dates: end: 20180417

REACTIONS (10)
  - Deformity [Recovering/Resolving]
  - Hypersensitivity [Recovering/Resolving]
  - Craniofacial deformity [Recovering/Resolving]
  - Heart rate increased [Recovering/Resolving]
  - Oropharyngeal discomfort [Recovering/Resolving]
  - Pharyngeal swelling [Recovering/Resolving]
  - Blood glucose increased [Recovering/Resolving]
  - Blood pressure increased [Recovered/Resolved]
  - Swelling face [Recovering/Resolving]
  - Contusion [Recovering/Resolving]

NARRATIVE: CASE EVENT DATE: 20180417
